APPROVED DRUG PRODUCT: HALDOL
Active Ingredient: HALOPERIDOL DECANOATE
Strength: EQ 100MG BASE/ML
Dosage Form/Route: INJECTABLE;INJECTION
Application: N018701 | Product #002
Applicant: JANSSEN PHARMACEUTICALS INC
Approved: Jan 31, 1997 | RLD: Yes | RS: No | Type: DISCN